FAERS Safety Report 10645062 (Version 2)
Quarter: 2014Q4

REPORT INFORMATION
  Report Type: Spontaneous
  Country: US (occurrence: US)
  Receive Date: 20141211
  Receipt Date: 20141211
  Transmission Date: 20150529
  Serious: Yes (Other)
  Sender: FDA-Public Use
  Company Number: US-JNJFOC-20141201524

PATIENT
  Age: 52 Year
  Sex: Female
  Weight: 81.65 kg

DRUGS (1)
  1. NEOSPORIN ECZEMA ESSENTIALS ANTI ITCH [Suspect]
     Active Substance: HYDROCORTISONE
     Indication: DRY SKIN
     Dosage: SOME ON THE TIP OF MY FINGER, JUST THE ONE TIME.
     Route: 061
     Dates: start: 20141128, end: 20141129

REACTIONS (4)
  - Product use issue [Unknown]
  - Pain [Unknown]
  - Burns third degree [Recovering/Resolving]
  - Wound [Unknown]

NARRATIVE: CASE EVENT DATE: 20141128
